FAERS Safety Report 8187957-0 (Version None)
Quarter: 2012Q1

REPORT INFORMATION
  Report Type: 
  Country: None (occurrence: None)
  Receive Date: 20120306
  Receipt Date: 20120229
  Transmission Date: 20120608
  Serious: Yes (Other)
  Sender: FDA-Public Use
  Company Number: JP-GLAXOSMITHKLINE-B0785280A

PATIENT
  Age: 8 Decade
  Sex: Male

DRUGS (4)
  1. REQUIP [Suspect]
     Dosage: 4.5MG PER DAY
     Route: 048
  2. UNKNOWN DRUG [Concomitant]
     Indication: PRODUCT USED FOR UNKNOWN INDICATION
     Route: 065
  3. REQUIP [Suspect]
     Route: 048
  4. REQUIP [Suspect]
     Indication: PARKINSON'S DISEASE
     Route: 048
     Dates: start: 20110101

REACTIONS (1)
  - SUDDEN ONSET OF SLEEP [None]
